FAERS Safety Report 8742185 (Version 2)
Quarter: 2012Q4

REPORT INFORMATION
  Report Type: 
  Country: US (occurrence: US)
  Receive Date: 20120824
  Receipt Date: 20120912
  Transmission Date: 20130627
  Serious: Yes (Hospitalization, Other)
  Sender: FDA-Public Use
  Company Number: US-BAYER-2012-085864

PATIENT
  Age: 37 Year
  Sex: Female
  Weight: 70.3 kg

DRUGS (9)
  1. YAZ [Suspect]
     Indication: CONTRACEPTION
     Dosage: UNK
     Dates: start: 200605, end: 20100111
  2. YAZ [Suspect]
     Indication: ACNE
  3. MULTI-VIT [Concomitant]
     Indication: HYPOVITAMINOSIS
     Dosage: 2 daily
  4. OXYCODONE [Concomitant]
     Indication: PAIN
     Dosage: 1 or 2 tablets every 6 hours as needed
     Route: 048
     Dates: start: 20100112
  5. CYCLOBENZAPRINE [Concomitant]
     Dosage: 10 mg, QID
     Route: 048
     Dates: start: 20100120
  6. VICODIN [Concomitant]
  7. ACETAMINOPHEN W/HYDROCODONE [Concomitant]
     Dosage: 325 mg,1 to 2 tabs prn
     Route: 048
  8. BACTRIM [Concomitant]
  9. CIPROFLOXACIN [Concomitant]

REACTIONS (10)
  - Cholelithiasis [None]
  - Pulmonary embolism [None]
  - Injury [None]
  - Pain [None]
  - Abdominal pain [None]
  - Dyspnoea [None]
  - Fatigue [None]
  - Pyrexia [None]
  - Sleep disorder due to a general medical condition [None]
  - Back pain [None]
